FAERS Safety Report 4816954-5 (Version None)
Quarter: 2005Q4

REPORT INFORMATION
  Report Type: 
  Country: None (occurrence: None)
  Receive Date: 20051031
  Receipt Date: 20051031
  Transmission Date: 20060501
  Serious: Yes (Hospitalization)
  Sender: FDA-Public Use
  Company Number: None

PATIENT

DRUGS (16)
  1. NPH INSULIN [Suspect]
     Indication: DIABETES MELLITUS
     Dosage: 30 UNITS AM AND 18 UNITS PM
  2. ACCU-CHECK COMFORT CV(GLUCOSE) TEST STRIP [Concomitant]
  3. ALCOHOL PREP PAD [Concomitant]
  4. ASPIRIN [Concomitant]
  5. BUMETANIDE [Concomitant]
  6. CLOPIDOGREL BISULFATE [Concomitant]
  7. CLOTRIMAZOLE [Concomitant]
  8. GLYBURIDE [Concomitant]
  9. GUAIFENESIN [Concomitant]
  10. HYDRALAZINE HCL [Concomitant]
  11. HUMULIN N [Concomitant]
  12. ISOSORBIDE DINITRATE [Concomitant]
  13. LOVASTATIN [Concomitant]
  14. METOPROLOL SUCCINATE [Concomitant]
  15. POTASSIUM CHLORIDE [Concomitant]
  16. . [Concomitant]

REACTIONS (2)
  - DIZZINESS [None]
  - HYPOGLYCAEMIA [None]
